FAERS Safety Report 10371372 (Version 1)
Quarter: 2014Q1

REPORT INFORMATION
  Report Type: Spontaneous
  Country: US (occurrence: None)
  Receive Date: 20140306
  Receipt Date: 20140306
  Transmission Date: 20141002
  Serious: Yes (Hospitalization, Other)
  Sender: FDA-Public Use
  Company Number: 163-21880-13080534

PATIENT
  Age: 66 Year
  Sex: Female
  Weight: 65 kg

DRUGS (6)
  1. REVLIMID [Suspect]
     Indication: PLASMA CELL MYELOMA
     Route: 048
     Dates: start: 20110916
  2. COSOPT [Concomitant]
  3. DIOVAN HCT (CO-DIOVAN) [Concomitant]
  4. IMODIUM A-S (LOPERAMIDE HYDROCHLORIDE) [Concomitant]
  5. MVI [Concomitant]
  6. BAYER ASPIRIN (ACETYLSALICYLIC ACID) [Concomitant]

REACTIONS (4)
  - Weight decreased [None]
  - Thrombosis [None]
  - Herpes zoster [None]
  - Asthenia [None]
